FAERS Safety Report 6989825-6 (Version None)
Quarter: 2010Q3

REPORT INFORMATION
  Report Type: 
  Country: None (occurrence: None)
  Receive Date: 20100916
  Receipt Date: 20100312
  Transmission Date: 20110219
  Serious: Yes (Hospitalization)
  Sender: FDA-Public Use
  Company Number: AU-PFIZER INC-2010021637

PATIENT
  Sex: Female
  Weight: 60 kg

DRUGS (4)
  1. LYRICA [Suspect]
     Indication: NEURALGIA
     Dosage: 75 MG, 2X/DAY
     Route: 048
     Dates: start: 20090303, end: 20090409
  2. LYRICA [Suspect]
     Indication: POST HERPETIC NEURALGIA
     Dosage: 150 MG, 2X/DAY
     Route: 048
     Dates: start: 20090409, end: 20090421
  3. ENDEP [Suspect]
     Indication: POST HERPETIC NEURALGIA
     Dosage: 30 MG, 1X/DAY, NOCTE
     Route: 048
     Dates: start: 20090303, end: 20090421
  4. PREDNISOLONE [Concomitant]
     Indication: POST HERPETIC NEURALGIA
     Dosage: 50 MG, 1X/DAY
     Route: 048
     Dates: start: 20090303, end: 20090317

REACTIONS (4)
  - DIPLOPIA [None]
  - EYELID PTOSIS [None]
  - IIIRD NERVE PARALYSIS [None]
  - STRABISMUS [None]
